FAERS Safety Report 6369289-6 (Version None)
Quarter: 2009Q3

REPORT INFORMATION
  Report Type: 
  Country: None (occurrence: None)
  Receive Date: 20090922
  Receipt Date: 20090921
  Transmission Date: 20100115
  Serious: Yes (Other)
  Sender: FDA-Public Use
  Company Number: US-AMGEN-US322519

PATIENT
  Sex: Male
  Weight: 79.9 kg

DRUGS (4)
  1. NPLATE [Suspect]
     Indication: IDIOPATHIC THROMBOCYTOPENIC PURPURA
     Route: 058
     Dates: start: 20081204, end: 20090725
  2. PREDNISONE [Concomitant]
  3. VITAMINS NOS [Concomitant]
  4. ASPIRIN [Concomitant]

REACTIONS (5)
  - ACNE [None]
  - DRUG INEFFECTIVE [None]
  - HYPERSENSITIVITY [None]
  - PLATELET COUNT DECREASED [None]
  - SKIN INFECTION [None]
